FAERS Safety Report 14082486 (Version 1)
Quarter: 2017Q4

REPORT INFORMATION
  Report Type: Spontaneous
  Country: US (occurrence: US)
  Receive Date: 20171013
  Receipt Date: 20171013
  Transmission Date: 20180321
  Serious: No
  Sender: FDA-Public Use
  Company Number: US-GLAXOSMITHKLINE-US2017156336

PATIENT

DRUGS (3)
  1. ABREVA [Suspect]
     Active Substance: DOCOSANOL
     Indication: BURNING SENSATION
     Dosage: UNK
  2. ABREVA [Suspect]
     Active Substance: DOCOSANOL
     Indication: PRURITUS
  3. ABREVA [Suspect]
     Active Substance: DOCOSANOL
     Indication: PAIN

REACTIONS (2)
  - Drug effect incomplete [Unknown]
  - Product use in unapproved indication [Unknown]
